FAERS Safety Report 8772639 (Version 2)
Quarter: 2013Q1

REPORT INFORMATION
  Report Type: Spontaneous
  Country: US (occurrence: US)
  Receive Date: 20120905
  Receipt Date: 20130110
  Transmission Date: 20140127
  Serious: Yes (Hospitalization)
  Sender: FDA-Public Use
  Company Number: US-BAYER-2012-090654

PATIENT
  Age: 26 Year
  Sex: Female

DRUGS (6)
  1. YASMIN [Suspect]
  2. ALLEGRA [Concomitant]
  3. FOLATE SODIUM [Concomitant]
  4. GARLIC [Concomitant]
  5. MULTIVITAMINS [Concomitant]
  6. PREDNISONE [Concomitant]

REACTIONS (1)
  - Pulmonary embolism [None]
